FAERS Safety Report 12757714 (Version 1)
Quarter: 2016Q3

REPORT INFORMATION
  Report Type: Report from Study
  Country: PA (occurrence: PA)
  Receive Date: 20160919
  Receipt Date: 20160919
  Transmission Date: 20161109
  Serious: Yes (Other)
  Sender: FDA-Public Use
  Company Number: PHHY2016PA017205

PATIENT
  Age: 84 Year
  Sex: Female

DRUGS (4)
  1. PERINDOPRIL [Concomitant]
     Active Substance: PERINDOPRIL
     Indication: PRODUCT USED FOR UNKNOWN INDICATION
     Route: 065
  2. CARVEDILOL. [Concomitant]
     Active Substance: CARVEDILOL
     Indication: PRODUCT USED FOR UNKNOWN INDICATION
     Route: 065
  3. EXELON [Suspect]
     Active Substance: RIVASTIGMINE TARTRATE
     Indication: PRODUCT USED FOR UNKNOWN INDICATION
     Route: 062
  4. SPIRONOLACTONE. [Concomitant]
     Active Substance: SPIRONOLACTONE
     Indication: PRODUCT USED FOR UNKNOWN INDICATION
     Route: 065

REACTIONS (12)
  - Mood altered [Unknown]
  - Anxiety [Unknown]
  - Influenza [Unknown]
  - Headache [Unknown]
  - Eye pruritus [Unknown]
  - Agitation [Unknown]
  - Memory impairment [Unknown]
  - Nasopharyngitis [Unknown]
  - Tremor [Unknown]
  - Peripheral swelling [Unknown]
  - Parkinson^s disease [Unknown]
  - Feeling abnormal [Unknown]
